FAERS Safety Report 11276704 (Version 1)
Quarter: 2015Q2

REPORT INFORMATION
  Report Type: Spontaneous
  Country: US (occurrence: None)
  Receive Date: 20150625
  Receipt Date: 20150625
  Transmission Date: 20150821
  Serious: No
  Sender: FDA-Public Use
  Company Number: A-US2015-116365

PATIENT
  Age: 69 Year
  Sex: Male

DRUGS (4)
  1. RIOCIGUAT (RIOCIGUAT) [Concomitant]
     Active Substance: RIOCIGUAT
  2. TREPROSTINIL (TREPROSTINIL) [Concomitant]
  3. ADCIRCA [Concomitant]
     Active Substance: TADALAFIL
  4. OPSUMIT [Suspect]
     Active Substance: MACITENTAN
     Indication: PULMONARY ARTERIAL HYPERTENSION
     Route: 048

REACTIONS (2)
  - Dizziness [None]
  - Faeces soft [None]
